FAERS Safety Report 5909663-2 (Version None)
Quarter: 2008Q4

REPORT INFORMATION
  Report Type: 
  Country: None (occurrence: None)
  Receive Date: 20081007
  Receipt Date: 20080926
  Transmission Date: 20090506
  Serious: Yes (Other)
  Sender: FDA-Public Use
  Company Number: PHEH2008US08136

PATIENT
  Sex: Female
  Weight: 62.585 kg

DRUGS (9)
  1. RECLAST [Suspect]
     Indication: OSTEOPOROSIS
     Dosage: 5MG/100ML, ONCE
     Route: 042
     Dates: start: 20080623, end: 20080623
  2. CELEBREX [Concomitant]
     Indication: ARTHRITIS
     Dosage: 200 MG, QD
     Route: 048
  3. CELEBREX [Concomitant]
     Dosage: 200 MG, BID
     Route: 048
     Dates: start: 20080801
  4. SPIRIVA [Concomitant]
     Indication: CHRONIC OBSTRUCTIVE PULMONARY DISEASE
     Dosage: 18 MCG, UNK
     Dates: start: 20061107
  5. CALTRATE +D [Concomitant]
     Dosage: 600 MG/40 IU
  6. CALTRATE +D [Concomitant]
     Dosage: 600/400
     Route: 048
  7. MULTIVITAMIN ^LAPPE^ [Concomitant]
     Dosage: UNK
  8. ALBUTEROL [Concomitant]
     Indication: CHRONIC OBSTRUCTIVE PULMONARY DISEASE
     Dosage: 90 MG 2 PUFFS, QID
     Dates: start: 20061016
  9. FOSAMAX [Concomitant]
     Dosage: UNK

REACTIONS (19)
  - ALANINE AMINOTRANSFERASE INCREASED [None]
  - ANTINUCLEAR ANTIBODY POSITIVE [None]
  - ARTHRALGIA [None]
  - ASPARTATE AMINOTRANSFERASE INCREASED [None]
  - BLOOD ALKALINE PHOSPHATASE INCREASED [None]
  - BLOOD UREA INCREASED [None]
  - C-REACTIVE PROTEIN INCREASED [None]
  - MEAN PLATELET VOLUME DECREASED [None]
  - MOBILITY DECREASED [None]
  - MONOCYTE COUNT INCREASED [None]
  - MUSCULOSKELETAL DISCOMFORT [None]
  - MUSCULOSKELETAL PAIN [None]
  - NECK PAIN [None]
  - NEUTROPHIL COUNT INCREASED [None]
  - PAIN [None]
  - PLATELET COUNT INCREASED [None]
  - POLYMYALGIA RHEUMATICA [None]
  - RED BLOOD CELL SEDIMENTATION RATE INCREASED [None]
  - WHITE BLOOD CELL COUNT INCREASED [None]
